FAERS Safety Report 4302331-2 (Version None)
Quarter: 2004Q1

REPORT INFORMATION
  Report Type: 
  Country: None (occurrence: None)
  Receive Date: 20040126
  Receipt Date: 20031003
  Transmission Date: 20041129
  Serious: No
  Sender: FDA-Public Use
  Company Number: USA031049037

PATIENT
  Age: 11 Year
  Sex: Female

DRUGS (2)
  1. STRATTERA [Suspect]
     Dosage: 40 MG
  2. RITALIN [Concomitant]

REACTIONS (1)
  - CHOKING [None]
